FAERS Safety Report 14870771 (Version 4)
Quarter: 2018Q3

REPORT INFORMATION
  Report Type: Report from Study
  Country: IL (occurrence: IL)
  Receive Date: 20180509
  Receipt Date: 20180903
  Transmission Date: 20181010
  Serious: Yes (Hospitalization, Other)
  Sender: FDA-Public Use
  Company Number: IL-IPSEN BIOPHARMACEUTICALS, INC.-2018-06676

PATIENT
  Age: 63 Year
  Sex: Female

DRUGS (5)
  1. SOMATULINE AUTOGEL 120MG [Suspect]
     Active Substance: LANREOTIDE ACETATE
     Indication: PANCREATIC NEUROENDOCRINE TUMOUR
  2. AMLOW [Concomitant]
     Active Substance: AMLODIPINE MALEATE
     Route: 048
  3. SANDOSTATIN [Concomitant]
     Active Substance: OCTREOTIDE ACETATE
     Indication: NEUROENDOCRINE TUMOUR
     Route: 058
  4. FEMARA [Concomitant]
     Active Substance: LETROZOLE
     Indication: BREAST CANCER METASTATIC
     Route: 048
  5. SOMATULINE AUTOGEL 120MG [Suspect]
     Active Substance: LANREOTIDE ACETATE
     Indication: NEUROENDOCRINE TUMOUR
     Dosage: 120 MG
     Route: 065
     Dates: start: 20130117

REACTIONS (4)
  - Ureterolithiasis [Recovered/Resolved]
  - Breast cancer recurrent [Unknown]
  - Malignant neoplasm progression [Not Recovered/Not Resolved]
  - Colorectal cancer [Unknown]

NARRATIVE: CASE EVENT DATE: 201308
